FAERS Safety Report 8825279 (Version 1)
Quarter: 2012Q4

REPORT INFORMATION
  Report Type: 
  Country: GB (occurrence: GB)
  Receive Date: 20121004
  Receipt Date: 20121004
  Transmission Date: 20130627
  Serious: Yes (Hospitalization)
  Sender: FDA-Public Use
  Company Number: GB-WATSON-2012-16640

PATIENT
  Age: 50 Year

DRUGS (13)
  1. OMEPRAZOLE (UNKNOWN) [Suspect]
     Indication: PRODUCT USED FOR UNKNOWN INDICATION
     Dosage: 40 mg, daily (in the morning)
     Route: 048
     Dates: start: 20120801
  2. DIGOXIN [Concomitant]
     Indication: PRODUCT USED FOR UNKNOWN INDICATION
     Dosage: 187.5 mcg, daily
     Route: 048
     Dates: start: 20120101
  3. ASPIRIN [Concomitant]
     Indication: PRODUCT USED FOR UNKNOWN INDICATION
     Dosage: 75 mg, unknown
     Route: 048
     Dates: start: 20110101
  4. BISOPROLOL [Concomitant]
     Indication: PRODUCT USED FOR UNKNOWN INDICATION
     Dosage: 3.75 mg, daily
     Route: 048
     Dates: start: 20110101
  5. MIRTAZAPINE [Concomitant]
     Indication: PRODUCT USED FOR UNKNOWN INDICATION
     Dosage: 15 mg, daily (at night)
     Route: 048
     Dates: start: 20120101
  6. SPIRONOLACTONE [Concomitant]
     Indication: PRODUCT USED FOR UNKNOWN INDICATION
     Dosage: 25 mg, daily (in the morning)
     Route: 048
     Dates: start: 20120101
  7. BUMETANIDE [Concomitant]
     Indication: PRODUCT USED FOR UNKNOWN INDICATION
     Dosage: 2 mg, bid
     Route: 048
     Dates: start: 20110101
  8. THIAMINE [Concomitant]
     Indication: PRODUCT USED FOR UNKNOWN INDICATION
     Dosage: 100 mg, bid
     Route: 048
     Dates: start: 20110101
  9. RAMIPRIL [Concomitant]
     Indication: PRODUCT USED FOR UNKNOWN INDICATION
     Dosage: 5 mg, daily (in the morning)
     Route: 048
     Dates: start: 20110101
  10. SIMVASTATIN [Concomitant]
     Indication: PRODUCT USED FOR UNKNOWN INDICATION
     Dosage: 40 mg, daily (at night)
     Route: 048
     Dates: start: 20110101
  11. PARACETAMOL [Concomitant]
     Indication: PRODUCT USED FOR UNKNOWN INDICATION
     Dosage: 1 g, as necessary
     Route: 048
     Dates: start: 20110101
  12. LACTULOSE [Concomitant]
     Indication: PRODUCT USED FOR UNKNOWN INDICATION
     Dosage: 10 ml, bid
     Route: 048
     Dates: start: 20110101
  13. METFORMIN [Concomitant]
     Indication: PRODUCT USED FOR UNKNOWN INDICATION
     Dosage: 500 mg, tid
     Route: 048
     Dates: start: 20110101

REACTIONS (1)
  - Chapped lips [Unknown]
